FAERS Safety Report 17731501 (Version 1)
Quarter: 2020Q2

REPORT INFORMATION
  Report Type: Spontaneous
  Country: US (occurrence: US)
  Receive Date: 20200430
  Receipt Date: 20200430
  Transmission Date: 20200714
  Serious: No
  Sender: FDA-Public Use
  Company Number: US-TEVA-2020-US-1224957

PATIENT
  Age: 92 Year
  Sex: Female

DRUGS (2)
  1. CICLOPIROX TEVA [Suspect]
     Active Substance: CICLOPIROX
     Indication: PRURITUS
     Dosage: USING THE PRODUCT APPROXIMATELY TWICE A WEEK
     Route: 065
     Dates: start: 2020
  2. CICLOPIROX TEVA [Suspect]
     Active Substance: CICLOPIROX
     Indication: SEBORRHOEIC DERMATITIS

REACTIONS (7)
  - Drug ineffective [Unknown]
  - Erythema [Unknown]
  - Acne [Recovering/Resolving]
  - Pruritus [Not Recovered/Not Resolved]
  - Skin burning sensation [Recovering/Resolving]
  - Alopecia [Not Recovered/Not Resolved]
  - Product substitution issue [Unknown]

NARRATIVE: CASE EVENT DATE: 2020
